FAERS Safety Report 8776067 (Version 1)
Quarter: 2012Q4

REPORT INFORMATION
  Report Type: 
  Country: FR (occurrence: FR)
  Receive Date: 20120910
  Receipt Date: 20120910
  Transmission Date: 20130627
  Serious: Yes (Hospitalization)
  Sender: FDA-Public Use
  Company Number: FR-PFIZER INC-2012216000

PATIENT
  Age: 53 Year
  Sex: Female

DRUGS (2)
  1. METHOTREXATE [Suspect]
     Indication: METASTASES TO MENINGES
     Dosage: UNK
     Route: 037
     Dates: start: 20120503, end: 20120814
  2. DEPO-MEDROL [Suspect]
     Dosage: UNK
     Route: 037
     Dates: start: 20120724, end: 20120724

REACTIONS (1)
  - Meningitis aseptic [Recovered/Resolved]
